FAERS Safety Report 4269757-7 (Version None)
Quarter: 2004Q1

REPORT INFORMATION
  Report Type: 
  Country: None (occurrence: None)
  Receive Date: 20040113
  Receipt Date: 20030825
  Transmission Date: 20041129
  Serious: Yes (Death, Hospitalization)
  Sender: FDA-Public Use
  Company Number: WAES 0308USA02600

PATIENT
  Age: 43 Year
  Sex: Male

DRUGS (5)
  1. ALCOHOL [Suspect]
     Route: 048
     Dates: start: 20030623, end: 20030623
  2. ALCOHOL [Suspect]
     Route: 048
     Dates: start: 20030624, end: 20030624
  3. CANNABIS [Suspect]
     Route: 048
     Dates: start: 20030623, end: 20030623
  4. CANNABIS [Suspect]
     Route: 048
     Dates: start: 20030624, end: 20030624
  5. STROMECTOL [Suspect]
     Route: 048
     Dates: start: 20030624, end: 20030624

REACTIONS (6)
  - AGITATION [None]
  - COMA [None]
  - FILARIASIS [None]
  - HEADACHE [None]
  - PALPITATIONS [None]
  - VERTIGO [None]
